FAERS Safety Report 9156238 (Version 1)
Quarter: 2013Q1

REPORT INFORMATION
  Report Type: Spontaneous
  Country: US (occurrence: US)
  Receive Date: 20130311
  Receipt Date: 20130311
  Transmission Date: 20140127
  Serious: No
  Sender: FDA-Public Use
  Company Number: US-ASTRAZENECA-2010SE33691

PATIENT
  Age: 86 Year
  Sex: Female
  Weight: 76.2 kg

DRUGS (20)
  1. SYMBICORT [Suspect]
     Indication: CHRONIC OBSTRUCTIVE PULMONARY DISEASE
     Dosage: 160/4.5, 2 PUFFS, BID
     Route: 055
     Dates: start: 2009
  2. SYMBICORT [Suspect]
     Indication: CHRONIC OBSTRUCTIVE PULMONARY DISEASE
     Dosage: BID
     Route: 055
     Dates: start: 2008
  3. CARBIDOPA [Concomitant]
     Indication: PARKINSON^S DISEASE
  4. LEVADOPA [Concomitant]
     Indication: PARKINSON^S DISEASE
  5. COZAAR [Concomitant]
  6. PROBIOTIC [Concomitant]
  7. GABAPENTIN [Concomitant]
     Indication: PAIN
  8. LASIX [Concomitant]
     Indication: CARDIAC FAILURE CONGESTIVE
  9. CITALOPREM [Concomitant]
     Indication: DEPRESSION
  10. POTASSIUM [Concomitant]
  11. PREMARIN CREAM [Concomitant]
  12. SPIRIVA [Concomitant]
  13. WARFARIN [Concomitant]
  14. AMITIZA [Concomitant]
  15. ALBUTEROL [Concomitant]
     Indication: CHRONIC OBSTRUCTIVE PULMONARY DISEASE
  16. IPATROPIUM BROMIDE [Concomitant]
     Indication: CHRONIC OBSTRUCTIVE PULMONARY DISEASE
  17. METRONIDAZOLE [Concomitant]
     Indication: ROSACEA
  18. VITAMINS [Concomitant]
  19. CIPRO [Concomitant]
     Indication: CYSTITIS
     Dates: start: 201302
  20. OTHER MEDICATIONS [Concomitant]

REACTIONS (4)
  - Dyspnoea [Not Recovered/Not Resolved]
  - Parkinson^s disease [Not Recovered/Not Resolved]
  - Tremor [Unknown]
  - Drug dose omission [Unknown]
